FAERS Safety Report 11957515 (Version 8)
Quarter: 2016Q4

REPORT INFORMATION
  Report Type: Report from Study
  Country: CA (occurrence: CA)
  Receive Date: 20160126
  Receipt Date: 20161006
  Transmission Date: 20170206
  Serious: Yes (Death, Other)
  Sender: FDA-Public Use
  Company Number: CA-VALIDUS PHARMACEUTICALS LLC-CA-2016VAL000106

PATIENT

DRUGS (22)
  1. SANDOSTATIN LAR DEPOT [Suspect]
     Active Substance: OCTREOTIDE ACETATE
     Indication: CARCINOID TUMOUR
     Dosage: 30 MG, QMO
     Route: 030
     Dates: start: 20050329, end: 20101029
  2. SANDOSTATIN LAR DEPOT [Suspect]
     Active Substance: OCTREOTIDE ACETATE
     Dosage: 40 MG, QMO
     Route: 030
     Dates: start: 20160212, end: 20160629
  3. SANDOSTATIN LAR DEPOT [Suspect]
     Active Substance: OCTREOTIDE ACETATE
     Dosage: UNK
  4. SANDOSTATIN [Suspect]
     Active Substance: OCTREOTIDE ACETATE
     Indication: PRODUCT USED FOR UNKNOWN INDICATION
     Dosage: UNK
     Route: 065
  5. ACETAMINOPHEN. [Concomitant]
     Active Substance: ACETAMINOPHEN
     Indication: PRODUCT USED FOR UNKNOWN INDICATION
     Dosage: 500 MG, UNK
     Route: 065
  6. SANDOSTATIN [Suspect]
     Active Substance: OCTREOTIDE ACETATE
     Indication: CARCINOID TUMOUR
     Dosage: UNK, TID
     Route: 058
  7. PANTOPRAZOLE [Suspect]
     Active Substance: PANTOPRAZOLE SODIUM
     Indication: PRODUCT USED FOR UNKNOWN INDICATION
     Dosage: 40 MG, QD (1 TABLET)
     Route: 048
  8. SANDOSTATIN LAR DEPOT [Suspect]
     Active Substance: OCTREOTIDE ACETATE
     Dosage: 30 MG, QMO
     Route: 030
     Dates: start: 20101125, end: 20130826
  9. SANDOSTATIN LAR DEPOT [Suspect]
     Active Substance: OCTREOTIDE ACETATE
     Dosage: 30 MG, QMO
     Route: 030
  10. HMS 90 [Concomitant]
     Indication: PRODUCT USED FOR UNKNOWN INDICATION
     Dosage: UNK
     Route: 065
  11. LORAZEPAM. [Concomitant]
     Active Substance: LORAZEPAM
     Indication: PRODUCT USED FOR UNKNOWN INDICATION
     Dosage: UNK
     Route: 065
  12. SPIROTONE [Concomitant]
     Indication: PRODUCT USED FOR UNKNOWN INDICATION
     Dosage: UNK
     Route: 065
  13. SANDOSTATIN LAR DEPOT [Suspect]
     Active Substance: OCTREOTIDE ACETATE
     Dosage: 40 MG, QMO
     Route: 030
     Dates: start: 201307
  14. SANDOSTATIN LAR DEPOT [Suspect]
     Active Substance: OCTREOTIDE ACETATE
     Dosage: 30 MG, QMO
     Route: 030
  15. SANDOSTATIN LAR DEPOT [Suspect]
     Active Substance: OCTREOTIDE ACETATE
     Dosage: 40 MG, BIW (EVERY 2 WEEKS)
     Route: 030
     Dates: start: 20141119, end: 20160113
  16. SANDOSTATIN LAR DEPOT [Suspect]
     Active Substance: OCTREOTIDE ACETATE
     Dosage: 40 MG, QMO
     Route: 030
     Dates: start: 20160727, end: 20160824
  17. NOVOSEMIDE [Concomitant]
     Indication: PRODUCT USED FOR UNKNOWN INDICATION
     Dosage: UNK
     Route: 065
  18. METOPROLOL TARTRATE. [Suspect]
     Active Substance: METOPROLOL TARTRATE
     Indication: PRODUCT USED FOR UNKNOWN INDICATION
     Dosage: 25 MG, QD (HALF A TAB)
     Route: 048
     Dates: start: 2015
  19. SANDOSTATIN LAR DEPOT [Suspect]
     Active Substance: OCTREOTIDE ACETATE
     Dosage: 40 MG, QMO
     Route: 030
     Dates: start: 20130905, end: 20141020
  20. SANDOSTATIN LAR DEPOT [Suspect]
     Active Substance: OCTREOTIDE ACETATE
     Dosage: 40 MG, BIW (EVERY 2 WEEKS)
     Route: 030
  21. DILAUDID [Concomitant]
     Active Substance: HYDROMORPHONE HYDROCHLORIDE
     Indication: PRODUCT USED FOR UNKNOWN INDICATION
     Dosage: UNK
     Route: 065
  22. QUETIAPINE. [Concomitant]
     Active Substance: QUETIAPINE
     Indication: PRODUCT USED FOR UNKNOWN INDICATION
     Dosage: 25 MG, UNK
     Route: 065

REACTIONS (53)
  - Death [Fatal]
  - Hypertension [Unknown]
  - Impaired healing [Unknown]
  - Swelling [Unknown]
  - Headache [Recovered/Resolved]
  - Neoplasm [Unknown]
  - Palpitations [Unknown]
  - Muscle spasms [Unknown]
  - Weight decreased [Unknown]
  - Syringe issue [Unknown]
  - Sputum discoloured [Recovering/Resolving]
  - Blood pressure increased [Unknown]
  - Peripheral swelling [Unknown]
  - Sinusitis [Unknown]
  - Throat irritation [Unknown]
  - Dyspnoea exertional [Unknown]
  - Heart rate increased [Unknown]
  - Inappropriate schedule of drug administration [Unknown]
  - Epistaxis [Unknown]
  - Cough [Recovering/Resolving]
  - Myalgia [Unknown]
  - Nasopharyngitis [Unknown]
  - Insomnia [Unknown]
  - Injection site reaction [Unknown]
  - Hot flush [Recovered/Resolved]
  - Metastases to liver [Unknown]
  - Nasal discharge discolouration [Not Recovered/Not Resolved]
  - Skin discolouration [Unknown]
  - Upper respiratory tract infection [Unknown]
  - Gait disturbance [Unknown]
  - Malignant neoplasm progression [Unknown]
  - Cardiac disorder [Unknown]
  - Body temperature decreased [Unknown]
  - Erythema [Unknown]
  - Productive cough [Unknown]
  - Diarrhoea [Unknown]
  - Heart rate irregular [Unknown]
  - Dyspnoea [Unknown]
  - Aphonia [Unknown]
  - Anxiety [Unknown]
  - Somnolence [Unknown]
  - Injection site pain [Unknown]
  - Fatigue [Unknown]
  - Dizziness [Recovered/Resolved]
  - Acne [Unknown]
  - Malaise [Unknown]
  - Visual impairment [Recovered/Resolved]
  - Ear discomfort [Unknown]
  - Injection site mass [Unknown]
  - Oedema [Unknown]
  - Dyspepsia [Unknown]
  - Heart rate decreased [Unknown]
  - Asthenia [Unknown]

NARRATIVE: CASE EVENT DATE: 20120211
